FAERS Safety Report 6917506-3 (Version None)
Quarter: 2010Q3

REPORT INFORMATION
  Report Type: 
  Country: None (occurrence: None)
  Receive Date: 20100806
  Receipt Date: 20100722
  Transmission Date: 20110219
  Serious: Yes (Life-Threatening, Hospitalization, Other)
  Sender: FDA-Public Use
  Company Number: 003641

PATIENT
  Age: 76 Year
  Sex: Female
  Weight: 48.5 kg

DRUGS (4)
  1. MACUGEN [Suspect]
     Indication: MACULAR DEGENERATION
     Dosage: 0.3MG, INTRAOCULAR
     Route: 031
     Dates: start: 20090706
  2. LEVOFLOXACIN [Concomitant]
  3. MROMFENAC SODIUM (BROMFENAC SODIUM) [Concomitant]
  4. KENACORT-A OPHTHALMIC OINTMENT [Concomitant]

REACTIONS (5)
  - BLOOD PRESSURE DECREASED [None]
  - CARDIAC FAILURE [None]
  - CONDITION AGGRAVATED [None]
  - URINARY TRACT INFECTION [None]
  - VENTRICULAR HYPOKINESIA [None]
